FAERS Safety Report 9203496 (Version 1)
Quarter: 2013Q1

REPORT INFORMATION
  Report Type: Spontaneous
  Country: US (occurrence: None)
  Receive Date: 20130329
  Receipt Date: 20130329
  Transmission Date: 20140127
  Serious: No
  Sender: FDA-Public Use
  Company Number: None

PATIENT
  Age: 27 Year
  Sex: Male
  Weight: 72.3 kg

DRUGS (1)
  1. METHYLPREDNISOLONE [Suspect]
     Indication: OROPHARYNGEAL PAIN
     Dosage: 4 MG OTHER PO
     Route: 048
     Dates: start: 20121231, end: 20130103

REACTIONS (2)
  - Palpitations [None]
  - Dyspnoea [None]
